FAERS Safety Report 5467311-2 (Version None)
Quarter: 2007Q3

REPORT INFORMATION
  Report Type: 
  Country: None (occurrence: None)
  Receive Date: 20070925
  Receipt Date: 20070913
  Transmission Date: 20080115
  Serious: Yes (Other)
  Sender: FDA-Public Use
  Company Number: GB-PFIZER INC-2007076934

PATIENT
  Age: 78 Year
  Sex: Male
  Weight: 85 kg

DRUGS (8)
  1. VARENICLINE TABLETS [Suspect]
     Route: 048
  2. BECLOMETHASONE DIPROPIONATE [Concomitant]
     Route: 055
  3. DIGOXIN [Concomitant]
     Route: 048
  4. FUROSEMIDE [Concomitant]
     Route: 048
  5. OXYBUTYNIN CHLORIDE [Concomitant]
     Route: 048
  6. PHYLLOCONTIN [Concomitant]
     Route: 048
  7. SALBUTAMOL [Concomitant]
     Route: 055
  8. WARFARIN SODIUM [Concomitant]
     Route: 048

REACTIONS (1)
  - GYNAECOMASTIA [None]
